FAERS Safety Report 7823079-3 (Version None)
Quarter: 2011Q4

REPORT INFORMATION
  Report Type: 
  Country: None (occurrence: None)
  Receive Date: 20111018
  Receipt Date: 20101117
  Transmission Date: 20120403
  Serious: No
  Sender: FDA-Public Use
  Company Number: US-ASTRAZENECA-2010SE54949

PATIENT
  Sex: Male

DRUGS (1)
  1. SYMBICORT [Suspect]
     Indication: COUGH
     Route: 055
     Dates: start: 20101109

REACTIONS (10)
  - ABDOMINAL DISCOMFORT [None]
  - HEADACHE [None]
  - COUGH [None]
  - DYSPNOEA EXERTIONAL [None]
  - INFLUENZA LIKE ILLNESS [None]
  - PAIN [None]
  - DRUG INEFFECTIVE FOR UNAPPROVED INDICATION [None]
  - INCREASED UPPER AIRWAY SECRETION [None]
  - SALIVARY HYPERSECRETION [None]
  - OFF LABEL USE [None]
